FAERS Safety Report 8116204-0 (Version None)
Quarter: 2012Q1

REPORT INFORMATION
  Report Type: 
  Country: None (occurrence: None)
  Receive Date: 20120206
  Receipt Date: 20120127
  Transmission Date: 20120608
  Serious: Yes (Hospitalization, Disabling, Other)
  Sender: FDA-Public Use
  Company Number: US-MERCK-1107USA03830

PATIENT
  Age: 48 Year
  Sex: Female
  Weight: 74 kg

DRUGS (10)
  1. HORMONES (UNSPECIFIED) [Concomitant]
     Route: 048
     Dates: start: 19700101, end: 20100101
  2. FOSAMAX [Suspect]
     Route: 065
     Dates: end: 20090101
  3. ACTONEL [Suspect]
     Route: 048
     Dates: start: 20070201, end: 20100401
  4. OXYCONTIN [Concomitant]
     Indication: PAIN
     Route: 048
     Dates: start: 19890101, end: 20100101
  5. KLONOPIN [Concomitant]
     Indication: PAIN
     Route: 048
     Dates: start: 19890101
  6. ACTONEL [Suspect]
     Indication: OSTEOPENIA
     Route: 048
     Dates: start: 20010401, end: 20070201
  7. FOSAMAX [Suspect]
     Indication: OSTEOPENIA
     Route: 048
     Dates: start: 19951001, end: 20000801
  8. OXYCODONE [Concomitant]
     Indication: PAIN
     Route: 048
     Dates: start: 19890101, end: 20100101
  9. FOSAMAX [Suspect]
     Indication: OSTEOPOROSIS
     Route: 048
     Dates: start: 19951001, end: 20000801
  10. FOSAMAX [Suspect]
     Route: 065
     Dates: end: 20090101

REACTIONS (81)
  - OSTEONECROSIS OF JAW [None]
  - ANXIETY [None]
  - CLUBBING [None]
  - ORAL INFECTION [None]
  - LIGAMENT SPRAIN [None]
  - MENISCUS LESION [None]
  - MYOFASCIAL PAIN SYNDROME [None]
  - ARTHRALGIA [None]
  - BREAST DISORDER [None]
  - IMPAIRED GASTRIC EMPTYING [None]
  - JAW DISORDER [None]
  - OSTEITIS [None]
  - BREAST DISCHARGE [None]
  - TOOTH FRACTURE [None]
  - NEUROGENIC BLADDER [None]
  - CALCINOSIS [None]
  - INTERVERTEBRAL DISC DISORDER [None]
  - JOINT DISLOCATION [None]
  - DEPRESSION [None]
  - MENOPAUSAL SYMPTOMS [None]
  - HYPERTONIC BLADDER [None]
  - ORAL TORUS [None]
  - TYPE 2 DIABETES MELLITUS [None]
  - SLEEP DISORDER [None]
  - SKIN DISORDER [None]
  - DYSLIPIDAEMIA [None]
  - BLEPHAROSPASM [None]
  - DENTAL CARIES [None]
  - GASTROOESOPHAGEAL REFLUX DISEASE [None]
  - GASTROINTESTINAL TRACT IRRITATION [None]
  - OSTEOARTHRITIS [None]
  - TOOTH DISORDER [None]
  - DRY MOUTH [None]
  - WEIGHT DECREASED [None]
  - VERTIGO [None]
  - TEMPOROMANDIBULAR JOINT SYNDROME [None]
  - LYMPHADENOPATHY [None]
  - MUSCULOSKELETAL CHEST PAIN [None]
  - MUSCLE DISORDER [None]
  - HYPERSENSITIVITY [None]
  - HEADACHE [None]
  - GINGIVAL BLEEDING [None]
  - CUBITAL TUNNEL SYNDROME [None]
  - CONSTIPATION [None]
  - RADIUS FRACTURE [None]
  - FALL [None]
  - ROAD TRAFFIC ACCIDENT [None]
  - VOMITING [None]
  - ERYTHEMA [None]
  - COLONIC POLYP [None]
  - PHOTOPHOBIA [None]
  - TOOTH INFECTION [None]
  - VIRAL INFECTION [None]
  - URINARY RETENTION [None]
  - DEPRESSED LEVEL OF CONSCIOUSNESS [None]
  - NAUSEA [None]
  - HEAD INJURY [None]
  - WRIST FRACTURE [None]
  - ARTHROPATHY [None]
  - BRUXISM [None]
  - DIPLOPIA [None]
  - MUSCLE STRAIN [None]
  - IMPAIRED HEALING [None]
  - LIMB INJURY [None]
  - VISUAL IMPAIRMENT [None]
  - SINUSITIS [None]
  - NIGHT SWEATS [None]
  - HOT FLUSH [None]
  - ASBESTOSIS [None]
  - EXCORIATION [None]
  - DRUG HYPERSENSITIVITY [None]
  - CONTUSION [None]
  - DIABETIC NEUROPATHY [None]
  - FOOT FRACTURE [None]
  - FACIAL BONES FRACTURE [None]
  - URINARY TRACT INFECTION [None]
  - DYSPEPSIA [None]
  - HYPERLIPIDAEMIA [None]
  - AUTOIMMUNE THYROIDITIS [None]
  - CANDIDIASIS [None]
  - EXOSTOSIS [None]
